FAERS Safety Report 8221748-7 (Version None)
Quarter: 2012Q1

REPORT INFORMATION
  Report Type: 
  Country: None (occurrence: None)
  Receive Date: 20120320
  Receipt Date: 20120320
  Transmission Date: 20120608
  Serious: Yes (Life-Threatening)
  Sender: FDA-Public Use
  Company Number: None

PATIENT
  Sex: Female
  Weight: 64.863 kg

DRUGS (1)
  1. CLARITHROMYCIN [Suspect]
     Indication: PULMONARY CONGESTION
     Dosage: 1 TABLET
     Route: 048
     Dates: start: 20120314, end: 20120316

REACTIONS (9)
  - NECK PAIN [None]
  - HALLUCINATION [None]
  - CRYING [None]
  - HEADACHE [None]
  - DYSURIA [None]
  - DIZZINESS [None]
  - DECREASED APPETITE [None]
  - NIGHTMARE [None]
  - THIRST [None]
